FAERS Safety Report 8135858-6 (Version None)
Quarter: 2012Q1

REPORT INFORMATION
  Report Type: 
  Country: None (occurrence: None)
  Receive Date: 20120214
  Receipt Date: 20120209
  Transmission Date: 20120608
  Serious: Yes (Hospitalization)
  Sender: FDA-Public Use
  Company Number: US-GLAXOSMITHKLINE-B0718204A

PATIENT
  Age: 75 Year
  Sex: Male
  Weight: 107.7 kg

DRUGS (2)
  1. AVANDAMET [Suspect]
     Indication: DIABETES MELLITUS
     Route: 048
     Dates: start: 20030101
  2. AVANDIA [Suspect]
     Indication: DIABETES MELLITUS
     Route: 048
     Dates: start: 20060101, end: 20091010

REACTIONS (4)
  - PLEURAL EFFUSION [None]
  - CORONARY ARTERY DISEASE [None]
  - CARDIOMYOPATHY [None]
  - CARDIOGENIC SHOCK [None]
